FAERS Safety Report 7953014-9 (Version None)
Quarter: 2011Q4

REPORT INFORMATION
  Report Type: 
  Country: None (occurrence: None)
  Receive Date: 20111201
  Receipt Date: 20111128
  Transmission Date: 20120403
  Serious: Yes (Other)
  Sender: FDA-Public Use
  Company Number: US-PFIZER INC-2011290553

PATIENT
  Sex: Female
  Weight: 70.295 kg

DRUGS (1)
  1. CLINDAMYCIN HCL [Suspect]
     Indication: ANTIBIOTIC THERAPY
     Dosage: UNK
     Route: 048
     Dates: start: 20110822

REACTIONS (3)
  - DIARRHOEA HAEMORRHAGIC [None]
  - CROHN'S DISEASE [None]
  - COLITIS [None]
